FAERS Safety Report 6408867-2 (Version None)
Quarter: 2009Q4

REPORT INFORMATION
  Report Type: 
  Country: None (occurrence: None)
  Receive Date: 20091019
  Receipt Date: 20091009
  Transmission Date: 20100525
  Serious: Yes (Life-Threatening, Hospitalization)
  Sender: FDA-Public Use
  Company Number: 2009100022

PATIENT
  Age: 30 Year
  Sex: Male

DRUGS (2)
  1. SOMA [Suspect]
  2. EXTRA STRENGTH TYLENOL [Suspect]

REACTIONS (5)
  - BRAIN INJURY [None]
  - DRUG INEFFECTIVE [None]
  - LIVER INJURY [None]
  - LUNG DISORDER [None]
  - RENAL DISORDER [None]
